FAERS Safety Report 17290101 (Version 2)
Quarter: 2020Q2

REPORT INFORMATION
  Report Type: Spontaneous
  Country: JP (occurrence: JP)
  Receive Date: 20200120
  Receipt Date: 20200522
  Transmission Date: 20200713
  Serious: Yes (Other)
  Sender: FDA-Public Use
  Company Number: JP-009507513-2001JPN001737J

PATIENT
  Age: 66 Year
  Sex: Male
  Weight: 61 kg

DRUGS (5)
  1. PEMETREXED DISODIUM [Concomitant]
     Active Substance: PEMETREXED DISODIUM
     Indication: NON-SMALL CELL LUNG CANCER
     Dosage: 950 MILLIGRAM, Q3W
     Route: 041
     Dates: start: 20190905
  2. CISPLATIN. [Concomitant]
     Active Substance: CISPLATIN
     Indication: NON-SMALL CELL LUNG CANCER
     Dosage: UNK, Q3W
     Route: 041
     Dates: start: 20190905, end: 20191108
  3. KEYTRUDA [Suspect]
     Active Substance: PEMBROLIZUMAB
     Indication: NON-SMALL CELL LUNG CANCER
     Dosage: 200 MILLIGRAM, Q3W
     Route: 041
     Dates: start: 20190905, end: 20200131
  4. CELECOX [Concomitant]
     Active Substance: CELECOXIB
     Dosage: 100 MILLIGRAM, BID
     Route: 065
  5. LANSOPRAZOLE. [Concomitant]
     Active Substance: LANSOPRAZOLE
     Indication: GASTRIC ULCER
     Dosage: 15 MILLIGRAM, QD
     Route: 048
     Dates: start: 201909, end: 20191017

REACTIONS (2)
  - Gastric ulcer [Recovering/Resolving]
  - Pneumonia [Unknown]

NARRATIVE: CASE EVENT DATE: 201910
